FAERS Safety Report 8985574 (Version 2)
Quarter: 2013Q1

REPORT INFORMATION
  Report Type: Report from Study
  Country: US (occurrence: US)
  Receive Date: 20121226
  Receipt Date: 20130207
  Transmission Date: 20140127
  Serious: Yes (Hospitalization)
  Sender: FDA-Public Use
  Company Number: US-US-EMD SERONO, INC.-7183409

PATIENT
  Age: 64 Year
  Sex: Female
  Weight: 159 kg

DRUGS (2)
  1. REBIF [Suspect]
     Indication: RELAPSING-REMITTING MULTIPLE SCLEROSIS
     Route: 058
     Dates: start: 20120917, end: 201212
  2. REBIF [Suspect]
     Route: 058
     Dates: start: 20130103

REACTIONS (5)
  - Ankle fracture [Recovering/Resolving]
  - Fall [Recovering/Resolving]
  - Hypertension [Recovered/Resolved]
  - Chills [Unknown]
  - Injection site erythema [Not Recovered/Not Resolved]
